FAERS Safety Report 7402125-5 (Version None)
Quarter: 2011Q1

REPORT INFORMATION
  Report Type: 
  Country: None (occurrence: None)
  Receive Date: 20110331
  Receipt Date: 20110318
  Transmission Date: 20110831
  Serious: Yes (Other)
  Sender: FDA-Public Use
  Company Number: 867615

PATIENT
  Age: 76 Year
  Sex: Male
  Weight: 67.6 kg

DRUGS (17)
  1. CARVEDILOL [Concomitant]
  2. (DILTIAZEM) [Concomitant]
  3. IRBESARTAN [Concomitant]
  4. (GLYCERYL TRINITRATE) [Suspect]
     Indication: BLOOD PRESSURE INCREASED
     Dates: start: 20110131
  5. (GLYCERYL TRINITRATE) [Suspect]
     Indication: HYPERTENSION
     Dates: start: 20110131
  6. (GLYCERYL TRINITRATE) [Suspect]
     Indication: BLOOD PRESSURE INCREASED
     Dates: start: 20100131
  7. (GLYCERYL TRINITRATE) [Suspect]
     Indication: HYPERTENSION
     Dates: start: 20100131
  8. (DOXAZOSIN) [Concomitant]
  9. PRAVASTATIN [Concomitant]
  10. (WARFARIN) [Concomitant]
  11. DEPONIT [Suspect]
     Indication: BLOOD PRESSURE
     Dosage: 5-10 MG DAILY, PATCH TRANSDERMAL ; 5-10 MG DAILY, PATCH TRANSDERMAL
     Route: 062
     Dates: start: 20110208, end: 20110214
  12. DEPONIT [Suspect]
     Indication: HYPERTENSION
     Dosage: 5-10 MG DAILY, PATCH TRANSDERMAL ; 5-10 MG DAILY, PATCH TRANSDERMAL
     Route: 062
     Dates: start: 20110208, end: 20110214
  13. DEPONIT [Suspect]
     Indication: BLOOD PRESSURE
     Dosage: 5-10 MG DAILY, PATCH TRANSDERMAL ; 5-10 MG DAILY, PATCH TRANSDERMAL
     Route: 062
     Dates: start: 20110208, end: 20110214
  14. DEPONIT [Suspect]
     Indication: HYPERTENSION
     Dosage: 5-10 MG DAILY, PATCH TRANSDERMAL ; 5-10 MG DAILY, PATCH TRANSDERMAL
     Route: 062
     Dates: start: 20110208, end: 20110214
  15. FUROSEMIDE [Concomitant]
  16. HUMALOG [Concomitant]
  17. (MOXONIDINE) [Concomitant]

REACTIONS (2)
  - RASH PRURITIC [None]
  - BLOOD PRESSURE INADEQUATELY CONTROLLED [None]
